FAERS Safety Report 18568912 (Version 1)
Quarter: 2020Q4

REPORT INFORMATION
  Report Type: Spontaneous
  Country: US (occurrence: US)
  Receive Date: 20201202
  Receipt Date: 20201202
  Transmission Date: 20210114
  Serious: Yes (Other)
  Sender: FDA-Public Use
  Company Number: US-EMCURE PHARMACEUTICALS LTD-2020-EPL-001997

PATIENT
  Age: 55 Year
  Sex: Female

DRUGS (4)
  1. BUSPIRONE [Suspect]
     Active Substance: BUSPIRONE HYDROCHLORIDE
     Dosage: CRUSHING BUSPIRONE TABLETS AND SNORTING THE POWDER BY NOSE, USING A FULL MONTH^S SUPPLY WITHIN 3 DAY
  2. VENLAFAXINE [Concomitant]
     Active Substance: VENLAFAXINE HYDROCHLORIDE
     Indication: PSYCHOTIC DISORDER
     Dosage: 75 MILLIGRAM,DAILY
  3. BUSPIRONE [Suspect]
     Active Substance: BUSPIRONE HYDROCHLORIDE
     Indication: PSYCHOTIC DISORDER
     Dosage: 15 MILLIGRAM, TID,DAILY
  4. TRAZODONE [Concomitant]
     Active Substance: TRAZODONE HYDROCHLORIDE
     Indication: PSYCHOTIC DISORDER
     Dosage: 50 MILLIGRAM,AT BEDTIME

REACTIONS (3)
  - Drug abuse [Unknown]
  - Incorrect route of product administration [Unknown]
  - Paraesthesia [Unknown]
